FAERS Safety Report 5274448-X (Version None)
Quarter: 2007Q1

REPORT INFORMATION
  Report Type: 
  Country: None (occurrence: None)
  Receive Date: 20070323
  Receipt Date: 20070314
  Transmission Date: 20070707
  Serious: Yes (Other)
  Sender: FDA-Public Use
  Company Number: JP-PFIZER INC-2007019369

PATIENT
  Age: 66 Year
  Sex: Female

DRUGS (5)
  1. NORVASC [Suspect]
     Indication: HYPERTENSION
     Dosage: DAILY DOSE:2.5MG
     Route: 048
     Dates: start: 20061214, end: 20070210
  2. NORVASC [Suspect]
     Dosage: DAILY DOSE:5MG
     Route: 048
  3. BLOPRESS [Concomitant]
     Indication: HYPERTENSION
     Dosage: DAILY DOSE:4MG
     Route: 048
  4. BLOPRESS [Concomitant]
     Dosage: DAILY DOSE:8MG
     Route: 048
  5. LORAZEPAM [Concomitant]
     Route: 048

REACTIONS (1)
  - EYELID OEDEMA [None]
